FAERS Safety Report 10634971 (Version 2)
Quarter: 2015Q2

REPORT INFORMATION
  Report Type: Spontaneous
  Country: US (occurrence: US)
  Receive Date: 20141205
  Receipt Date: 20150406
  Transmission Date: 20150821
  Serious: No
  Sender: FDA-Public Use
  Company Number: US-JNJFOC-20141201575

PATIENT
  Sex: Male

DRUGS (1)
  1. RISPERDAL [Suspect]
     Active Substance: RISPERIDONE
     Indication: ATTENTION DEFICIT/HYPERACTIVITY DISORDER
     Route: 048

REACTIONS (7)
  - Abnormal weight gain [Unknown]
  - Hyperprolactinaemia [Unknown]
  - Depression [Unknown]
  - Product use issue [Unknown]
  - Gynaecomastia [Unknown]
  - Anxiety [Unknown]
  - Galactorrhoea [Unknown]
